FAERS Safety Report 18958890 (Version 2)
Quarter: 2021Q1

REPORT INFORMATION
  Report Type: Spontaneous
  Country: GB (occurrence: GB)
  Receive Date: 20210302
  Receipt Date: 20210319
  Transmission Date: 20210420
  Serious: Yes (Hospitalization, Other)
  Sender: FDA-Public Use
  Company Number: GB-TEVA-2021-GB-1882378

PATIENT
  Age: 57 Year
  Sex: Female

DRUGS (10)
  1. TICAGRELOR. [Concomitant]
     Active Substance: TICAGRELOR
  2. ASPIRIN. [Concomitant]
     Active Substance: ASPIRIN
  3. LANSOPRAZOL [Concomitant]
     Active Substance: LANSOPRAZOLE
  4. DILTIAZEM HYDROCHLORIDE. [Suspect]
     Active Substance: DILTIAZEM HYDROCHLORIDE
     Indication: MYOCARDIAL INFARCTION
     Dosage: 180 MILLIGRAM DAILY; 90MG
     Route: 048
     Dates: end: 20200306
  5. GLYCERYL TRINITRATE [Concomitant]
     Active Substance: NITROGLYCERIN
  6. SIMVASTATINE [Concomitant]
     Active Substance: SIMVASTATIN
  7. ISOSORBIDE MONONITRATE. [Concomitant]
     Active Substance: ISOSORBIDE MONONITRATE
  8. RAMIPRIL. [Concomitant]
     Active Substance: RAMIPRIL
  9. ADCAL [Concomitant]
  10. CLENIL MODULITE [Concomitant]
     Active Substance: BECLOMETHASONE DIPROPIONATE

REACTIONS (4)
  - Chest discomfort [Unknown]
  - Cardiac flutter [Recovered/Resolved]
  - Bradycardia [Recovered/Resolved]
  - Dizziness [Recovered/Resolved]
